FAERS Safety Report 6539627-X (Version None)
Quarter: 2010Q1

REPORT INFORMATION
  Report Type: 
  Country: None (occurrence: None)
  Receive Date: 20100115
  Receipt Date: 20100104
  Transmission Date: 20100710
  Serious: No
  Sender: FDA-Public Use
  Company Number: JP-JNJFOC-20091206780

PATIENT
  Age: 27 Year
  Sex: Female

DRUGS (1)
  1. RISPERDAL [Suspect]
     Indication: FEELING ABNORMAL
     Route: 048

REACTIONS (2)
  - DYSKINESIA [None]
  - OFF LABEL USE [None]
